FAERS Safety Report 5052959-X (Version None)
Quarter: 2006Q3

REPORT INFORMATION
  Report Type: 
  Country: None (occurrence: None)
  Receive Date: 20060712
  Receipt Date: 20060627
  Transmission Date: 20061208
  Serious: Yes (Other)
  Sender: FDA-Public Use
  Company Number: US-2006-017264

PATIENT
  Age: 58 Year
  Sex: Female

DRUGS (2)
  1. BETASERON [Suspect]
     Indication: MULTIPLE SCLEROSIS
     Dosage: 8 MIU, EVERY 2D, SUBCUTANEOUS
     Route: 058
     Dates: start: 20060315
  2. ANTINEOPLASTIC AGENTS () [Suspect]
     Indication: MULTIPLE SCLEROSIS
     Dosage: FIVE TREATMENTS,
     Dates: start: 20051101, end: 20060301

REACTIONS (8)
  - DYSPEPSIA [None]
  - GINGIVAL INFECTION [None]
  - IMMUNOSUPPRESSION [None]
  - INFECTION IN AN IMMUNOCOMPROMISED HOST [None]
  - INFLUENZA LIKE ILLNESS [None]
  - JAW DISORDER [None]
  - MALAISE [None]
  - OSTEOMYELITIS [None]
